FAERS Safety Report 10164960 (Version 2)
Quarter: 2014Q2

REPORT INFORMATION
  Report Type: Spontaneous
  Country: US (occurrence: US)
  Receive Date: 20140510
  Receipt Date: 20140510
  Transmission Date: 20141212
  Serious: No
  Sender: FDA-Public Use
  Company Number: US-BRISTOL-MYERS SQUIBB COMPANY-19618586

PATIENT
  Age: 66 Year
  Sex: Female
  Weight: 90.7 kg

DRUGS (6)
  1. BYETTA PEN DISPOSABLE [Suspect]
     Indication: TYPE 2 DIABETES MELLITUS
     Dosage: PRESCRIPTION #: 6240579,5MCG
     Route: 058
     Dates: start: 1990
  2. GLIPIZIDE [Suspect]
  3. GLUCOTROL [Suspect]
  4. SYNTHROID [Concomitant]
  5. VITAMIN E [Concomitant]
  6. VITAMIN [Concomitant]

REACTIONS (5)
  - Incorrect dose administered [Unknown]
  - Hypertension [Unknown]
  - Nervousness [Unknown]
  - Dizziness [Unknown]
  - Drug dose omission [Unknown]
